FAERS Safety Report 9009265 (Version 2)
Quarter: 2013Q2

REPORT INFORMATION
  Report Type: Spontaneous
  Country: US (occurrence: US)
  Receive Date: 20130111
  Receipt Date: 20130401
  Transmission Date: 20140414
  Serious: Yes (Death, Hospitalization, Disabling, Other)
  Sender: FDA-Public Use
  Company Number: US-GLAXOSMITHKLINE-A1007891A

PATIENT
  Age: 76 Year
  Sex: Male

DRUGS (9)
  1. PROMACTA [Suspect]
     Indication: IDIOPATHIC THROMBOCYTOPENIC PURPURA
     Dosage: 50MG PER DAY
     Route: 048
     Dates: start: 20121210
  2. ALLOPURINOL [Concomitant]
  3. BUMEX [Concomitant]
  4. COREG [Concomitant]
  5. LEVOTHYROXINE [Concomitant]
  6. LISINOPRIL [Concomitant]
  7. SIMVASTATIN [Concomitant]
  8. SPIRONOLACTONE [Concomitant]
  9. TEMAZEPAM [Concomitant]

REACTIONS (3)
  - Death [Fatal]
  - Endotracheal intubation [Unknown]
  - Dyspnoea [Unknown]
